FAERS Safety Report 8823702 (Version 1)
Quarter: 2012Q4

REPORT INFORMATION
  Report Type: 
  Country: US (occurrence: US)
  Receive Date: 20121003
  Receipt Date: 20121003
  Transmission Date: 20130627
  Serious: No
  Sender: FDA-Public Use
  Company Number: US-ASTRAZENECA-2012SE74966

PATIENT
  Age: 59 Year
  Sex: Female

DRUGS (6)
  1. NEXIUM [Suspect]
     Indication: GASTROOESOPHAGEAL REFLUX DISEASE
     Route: 048
  2. NEXIUM [Suspect]
     Indication: GASTROOESOPHAGEAL REFLUX DISEASE
     Route: 048
  3. PRILOSEC [Suspect]
     Route: 048
  4. PREVACID [Concomitant]
  5. PANTOPRAZOLE [Concomitant]
  6. DEXILANT [Concomitant]

REACTIONS (4)
  - Total bile acids increased [Unknown]
  - Adverse event [Unknown]
  - Drug effect decreased [Unknown]
  - Off label use [Unknown]
